FAERS Safety Report 9088639 (Version 1)
Quarter: 2013Q1

REPORT INFORMATION
  Report Type: Spontaneous
  Country: CO (occurrence: CO)
  Receive Date: 20130201
  Receipt Date: 20130201
  Transmission Date: 20140127
  Serious: Yes (Death, Hospitalization)
  Sender: FDA-Public Use
  Company Number: PHHY2012CO119354

PATIENT
  Age: 72 Year
  Sex: Female

DRUGS (1)
  1. SANDOSTATIN LAR [Suspect]
     Indication: NEUROENDOCRINE TUMOUR
     Dosage: 1 DF, MONTHLY
     Route: 030
     Dates: start: 20120523, end: 20120924

REACTIONS (4)
  - Cardiac failure [Fatal]
  - Loss of consciousness [Fatal]
  - Oedema [Recovering/Resolving]
  - Diarrhoea [Recovering/Resolving]
